FAERS Safety Report 5676520-9 (Version None)
Quarter: 2008Q1

REPORT INFORMATION
  Report Type: 
  Country: None (occurrence: None)
  Receive Date: 20080324
  Receipt Date: 20080312
  Transmission Date: 20080703
  Serious: Yes (Other)
  Sender: FDA-Public Use
  Company Number: NL-RANBAXY-2008RR-13706

PATIENT

DRUGS (6)
  1. ACETAMINOPHEN [Suspect]
     Indication: PYREXIA
  2. VALPROATE SODIUM [Suspect]
     Indication: MYOCLONIC EPILEPSY
     Dosage: 27 MG/KG, QD
  3. TOPIRAMATE [Suspect]
     Dosage: 8.4 MG/KG, QD
  4. CLOBAZAM [Concomitant]
     Dosage: 0.3 MG/KG, QD
  5. LEVOCARNITINE [Concomitant]
  6. LACTULOSE [Concomitant]

REACTIONS (2)
  - DRUG INTERACTION [None]
  - LIVER INJURY [None]
